FAERS Safety Report 7926877-0 (Version None)
Quarter: 2011Q4

REPORT INFORMATION
  Report Type: 
  Country: None (occurrence: None)
  Receive Date: 20111118
  Receipt Date: 20111114
  Transmission Date: 20120403
  Serious: Yes (Other)
  Sender: FDA-Public Use
  Company Number: US-PFIZER INC-2011278782

PATIENT
  Sex: Female
  Weight: 63.49 kg

DRUGS (4)
  1. EFFEXOR XR [Suspect]
     Dosage: 225 MG, 1X/DAY
     Route: 048
     Dates: start: 20111114
  2. EFFEXOR XR [Suspect]
     Dosage: 300 MG, 1X/DAY
     Route: 048
     Dates: start: 20110101, end: 20111113
  3. MESALAMINE [Concomitant]
     Indication: CROHN'S DISEASE
     Dosage: UNK
  4. EFFEXOR XR [Suspect]
     Indication: DEPRESSION
     Dosage: 225 MG, 1X/DAY
     Route: 048
     Dates: start: 20090101, end: 20110101

REACTIONS (5)
  - DEPRESSION [None]
  - OESOPHAGEAL STENOSIS [None]
  - THROAT TIGHTNESS [None]
  - DYSPHAGIA [None]
  - OESOPHAGEAL SPASM [None]
